FAERS Safety Report 24739966 (Version 1)
Quarter: 2024Q4

REPORT INFORMATION
  Report Type: Report from Study
  Country: CN (occurrence: CN)
  Receive Date: 20241216
  Receipt Date: 20241216
  Transmission Date: 20250115
  Serious: Yes (Other)
  Sender: MERCK
  Company Number: CN-BAYER-2024A148376

PATIENT
  Age: 59 Year
  Sex: Male

DRUGS (88)
  1. VERICIGUAT [Suspect]
     Active Substance: VERICIGUAT
     Dosage: 10 MG, QD
     Dates: start: 20240702
  2. (RS)-3 METHYL-2-OXOVALERIANIC ACID CALCIUM [Concomitant]
     Dosage: 2.52 G, TID
     Route: 048
     Dates: start: 202405, end: 2024
  3. AMBROXOL [Concomitant]
     Active Substance: AMBROXOL
     Dosage: 30 MG, TID
     Route: 042
     Dates: start: 20240630
  4. AMLODIPINE [Concomitant]
     Active Substance: AMLODIPINE BESYLATE
     Dosage: 5 MG, QD
     Route: 048
     Dates: start: 20240506, end: 20240528
  5. AMLODIPINE [Concomitant]
     Active Substance: AMLODIPINE BESYLATE
     Dosage: 10 MG, QD
     Route: 048
     Dates: start: 202405, end: 2024
  6. ATORVASTATIN [Concomitant]
     Active Substance: ATORVASTATIN
     Dosage: 20 MG, QD
     Route: 048
     Dates: start: 20240506, end: 20240528
  7. ATORVASTATIN [Concomitant]
     Active Substance: ATORVASTATIN
     Dosage: 20 MG, QD
     Route: 048
     Dates: start: 202405, end: 2024
  8. ATORVASTATIN [Concomitant]
     Active Substance: ATORVASTATIN
     Dosage: 20 MG, HS
     Route: 048
     Dates: start: 20240629
  9. BENIDIPINE [Concomitant]
     Active Substance: BENIDIPINE
     Dosage: 4 MG, QD
     Route: 048
     Dates: start: 20240702, end: 20240702
  10. BENIDIPINE [Concomitant]
     Active Substance: BENIDIPINE
     Dosage: 8 MG, QD
     Route: 048
     Dates: start: 20240716
  11. BUDESONIDE [Concomitant]
     Active Substance: BUDESONIDE
     Dosage: 1 ML, TID
     Route: 055
     Dates: start: 20240629
  12. BUMETANIDE [Concomitant]
     Active Substance: BUMETANIDE
     Dosage: 2 MG, QD
     Route: 048
     Dates: start: 2024, end: 2024
  13. CARVEDILOL [Concomitant]
     Active Substance: CARVEDILOL
     Dosage: 12.5 MG, BID
     Route: 048
     Dates: start: 202405, end: 2024
  14. CEFOPERAZONE\SULBACTAM [Concomitant]
     Active Substance: CEFOPERAZONE\SULBACTAM
     Dosage: 3 G, BID
     Route: 042
     Dates: start: 20240629
  15. CLOPIDOGREL [Concomitant]
     Active Substance: CLOPIDOGREL BISULFATE
     Dosage: 50 MG, QD
     Route: 048
     Dates: start: 202405, end: 2024
  16. CLOPIDOGREL [Concomitant]
     Active Substance: CLOPIDOGREL BISULFATE
     Dosage: 75 MG, QD
     Route: 048
     Dates: start: 20240630
  17. CORDYCEPS SINENSIS [Concomitant]
     Dosage: 1.5 G, TID
     Route: 048
     Dates: start: 202405, end: 2024
  18. DIGOXIN [Concomitant]
     Active Substance: DIGOXIN
     Dosage: 0.25 MG, QD
     Route: 042
     Dates: start: 20240706, end: 20240706
  19. DIGOXIN [Concomitant]
     Active Substance: DIGOXIN
     Dosage: 0.125 MG, QD
     Route: 048
     Dates: start: 20240715
  20. DOXAZOSIN [Concomitant]
     Active Substance: DOXAZOSIN\DOXAZOSIN MESYLATE
     Dosage: 4 MG, QD
     Route: 048
     Dates: start: 202405, end: 2024
  21. ESTAZOLAM [Concomitant]
     Active Substance: ESTAZOLAM
     Dosage: 2 MG, HS
     Route: 048
     Dates: start: 20240603, end: 20240603
  22. ESTAZOLAM [Concomitant]
     Active Substance: ESTAZOLAM
     Dosage: 1 MG, HS
     Route: 048
     Dates: start: 20240628
  23. FEBUXOSTAT [Concomitant]
     Active Substance: FEBUXOSTAT
     Dosage: 40 MG, QD
     Route: 048
     Dates: start: 20240506, end: 20240528
  24. FEBUXOSTAT [Concomitant]
     Active Substance: FEBUXOSTAT
     Dosage: 40 MG, QD
     Route: 048
     Dates: start: 20240628
  25. FUROSEMIDE [Concomitant]
     Active Substance: FUROSEMIDE
     Indication: Heart failure with reduced ejection fraction
     Dosage: 20 MG, TID
     Route: 048
     Dates: start: 20240506, end: 20240528
  26. FUROSEMIDE [Concomitant]
     Active Substance: FUROSEMIDE
     Dosage: 20 MG, QD
     Route: 042
     Dates: start: 20240531, end: 20240531
  27. FUROSEMIDE [Concomitant]
     Active Substance: FUROSEMIDE
     Dosage: 10 MG, QD
     Route: 042
     Dates: start: 20240604, end: 20240604
  28. FUROSEMIDE [Concomitant]
     Active Substance: FUROSEMIDE
     Dosage: 20 MG, QD
     Route: 042
     Dates: start: 20240605, end: 20240605
  29. FUROSEMIDE [Concomitant]
     Active Substance: FUROSEMIDE
     Dosage: 20 MG, QD
     Route: 042
     Dates: start: 20240607, end: 20240607
  30. FUROSEMIDE [Concomitant]
     Active Substance: FUROSEMIDE
     Dosage: 20 MG, QD
     Route: 042
     Dates: start: 20240608, end: 20240608
  31. FUROSEMIDE [Concomitant]
     Active Substance: FUROSEMIDE
     Dosage: 20 MG, QD
     Route: 042
     Dates: start: 20240609, end: 20240609
  32. FUROSEMIDE [Concomitant]
     Active Substance: FUROSEMIDE
     Dosage: 20 MG, QD
     Route: 042
     Dates: start: 20240611, end: 20240611
  33. FUROSEMIDE [Concomitant]
     Active Substance: FUROSEMIDE
     Dosage: 20 MG, QD
     Route: 042
     Dates: start: 20240613, end: 20240613
  34. FUROSEMIDE [Concomitant]
     Active Substance: FUROSEMIDE
     Dosage: 20 MG, QD
     Route: 042
     Dates: start: 20240615, end: 20240615
  35. FUROSEMIDE [Concomitant]
     Active Substance: FUROSEMIDE
     Dosage: 10 MG, QD
     Route: 048
     Dates: start: 20240618, end: 20240618
  36. FUROSEMIDE [Concomitant]
     Active Substance: FUROSEMIDE
     Dosage: 20 MG, QD
     Route: 042
     Dates: start: 20240619, end: 20240619
  37. FUROSEMIDE [Concomitant]
     Active Substance: FUROSEMIDE
     Dosage: 20 MG, QD
     Route: 042
     Dates: start: 20240622, end: 20240622
  38. FUROSEMIDE [Concomitant]
     Active Substance: FUROSEMIDE
     Dosage: 20 MG, QD
     Route: 042
     Dates: start: 20240623, end: 20240623
  39. FUROSEMIDE [Concomitant]
     Active Substance: FUROSEMIDE
     Dosage: 20 MG, QD
     Route: 042
     Dates: start: 20240625, end: 20240625
  40. FUROSEMIDE [Concomitant]
     Active Substance: FUROSEMIDE
     Dosage: 40 MG, BID
     Route: 048
     Dates: start: 20240628
  41. FUROSEMIDE [Concomitant]
     Active Substance: FUROSEMIDE
     Dosage: 20 MG, QD
     Route: 042
     Dates: start: 20240629, end: 20240629
  42. FUROSEMIDE [Concomitant]
     Active Substance: FUROSEMIDE
     Dosage: 20 MG, QD
     Route: 042
     Dates: start: 20240703, end: 20240703
  43. FUROSEMIDE [Concomitant]
     Active Substance: FUROSEMIDE
     Dosage: 20 MG, QD
     Route: 042
     Dates: start: 20240707, end: 20240707
  44. FUROSEMIDE [Concomitant]
     Active Substance: FUROSEMIDE
     Dosage: 20 MG, QD
     Route: 042
     Dates: start: 20240708, end: 20240708
  45. FUROSEMIDE [Concomitant]
     Active Substance: FUROSEMIDE
     Dosage: 20 MG, QD
     Route: 042
     Dates: start: 20240716, end: 20240716
  46. FUROSEMIDE [Concomitant]
     Active Substance: FUROSEMIDE
     Dosage: 20 MG, QD
     Route: 042
     Dates: start: 20240717, end: 20240717
  47. FUROSEMIDE [Concomitant]
     Active Substance: FUROSEMIDE
     Dosage: 10 MG, ONCE
     Route: 042
     Dates: start: 20240717, end: 20240717
  48. FUROSEMIDE [Concomitant]
     Active Substance: FUROSEMIDE
     Dosage: 20 MG, ONCE
     Route: 042
     Dates: start: 20240718, end: 20240718
  49. FUROSEMIDE [Concomitant]
     Active Substance: FUROSEMIDE
     Dosage: 20 MG, ONCE
     Route: 042
     Dates: start: 20240719, end: 20240719
  50. FUROSEMIDE [Concomitant]
     Active Substance: FUROSEMIDE
     Dosage: 20 MG, QD
     Route: 042
     Dates: start: 20240720, end: 20240720
  51. HYDROCHLOROTHIAZIDE [Concomitant]
     Active Substance: HYDROCHLOROTHIAZIDE
     Dosage: 25 MG, QD
     Route: 048
     Dates: start: 20240716
  52. ALBUTEROL\IPRATROPIUM [Concomitant]
     Active Substance: ALBUTEROL\IPRATROPIUM
     Dosage: 1 ML, TID
     Route: 055
     Dates: start: 20240629
  53. ISOSORBIDE MONONITRATE [Concomitant]
     Active Substance: ISOSORBIDE MONONITRATE
     Dosage: 20 MG, BID
     Route: 048
     Dates: start: 202405, end: 2024
  54. ISOSORBIDE MONONITRATE [Concomitant]
     Active Substance: ISOSORBIDE MONONITRATE
     Dosage: 30 MG, QD
     Route: 048
     Dates: start: 20240629, end: 20240630
  55. ISOSORBIDE MONONITRATE [Concomitant]
     Active Substance: ISOSORBIDE MONONITRATE
     Dosage: 30 MG, BID
     Route: 048
     Dates: start: 20240701
  56. ISOSORBIDE MONONITRATE [Concomitant]
     Active Substance: ISOSORBIDE MONONITRATE
     Dosage: 30 MG, QD
     Route: 048
     Dates: start: 20240715
  57. IVABRADINE [Concomitant]
     Active Substance: IVABRADINE
     Dosage: 5 MG, BID
     Route: 048
     Dates: start: 202405, end: 2024
  58. IVABRADINE [Concomitant]
     Active Substance: IVABRADINE
     Dosage: 5 MG, QD
     Route: 048
     Dates: start: 20240629, end: 20240629
  59. IVABRADINE [Concomitant]
     Active Substance: IVABRADINE
     Dosage: 7.5 MG, BID
     Route: 048
     Dates: start: 20240701
  60. NICORANDIL [Concomitant]
     Active Substance: NICORANDIL
     Dosage: 5 MG, TID
     Route: 048
     Dates: start: 20240701
  61. NICORANDIL [Concomitant]
     Active Substance: NICORANDIL
     Dosage: 5 MG, TID
     Route: 048
     Dates: start: 20240716, end: 20240721
  62. PHOSPHOLIPID [Concomitant]
     Active Substance: PHOSPHOLIPID
     Dosage: 456 MG, TID
     Route: 048
     Dates: start: 202405, end: 2024
  63. PHOSPHOLIPID [Concomitant]
     Active Substance: PHOSPHOLIPID
     Dosage: 228 MG, TID
     Route: 048
     Dates: start: 20240715
  64. POTASSIUM [Concomitant]
     Active Substance: POTASSIUM
     Dosage: 15 ML, QD
     Route: 048
     Dates: start: 20240608, end: 20240608
  65. POTASSIUM [Concomitant]
     Active Substance: POTASSIUM
     Dosage: 1 G, QD
     Route: 048
     Dates: start: 20240628
  66. TOLVAPTAN [Concomitant]
     Active Substance: TOLVAPTAN
     Indication: Heart failure with reduced ejection fraction
     Dosage: 7.5 MG, QD
     Route: 048
     Dates: start: 20240628
  67. TOLVAPTAN [Concomitant]
     Active Substance: TOLVAPTAN
     Dosage: 7.5 MG, QD
     Route: 048
     Dates: start: 20240703, end: 20240703
  68. TOLVAPTAN [Concomitant]
     Active Substance: TOLVAPTAN
     Dosage: 7.5 MG, QD
     Route: 048
     Dates: start: 20240707, end: 20240707
  69. TOLVAPTAN [Concomitant]
     Active Substance: TOLVAPTAN
     Dosage: 7.5 MG, QD
     Route: 048
     Dates: start: 20241004, end: 20241009
  70. TORSEMIDE [Concomitant]
     Active Substance: TORSEMIDE
     Indication: Heart failure with reduced ejection fraction
     Dosage: 30 MG, BID
     Route: 048
     Dates: start: 202405, end: 2024
  71. TORSEMIDE [Concomitant]
     Active Substance: TORSEMIDE
     Dosage: 100 MG, QD
     Route: 042
     Dates: start: 20240604, end: 20240604
  72. TORSEMIDE [Concomitant]
     Active Substance: TORSEMIDE
     Dosage: 40 MG, QD
     Route: 042
     Dates: start: 20240604, end: 20240604
  73. TORSEMIDE [Concomitant]
     Active Substance: TORSEMIDE
     Dosage: 60 MG, QD
     Route: 042
     Dates: start: 20240605, end: 20240605
  74. TORSEMIDE [Concomitant]
     Active Substance: TORSEMIDE
     Dosage: 60 MG, QD
     Route: 041
     Dates: start: 20240605, end: 20240605
  75. TORSEMIDE [Concomitant]
     Active Substance: TORSEMIDE
     Dosage: 60 MG, QD
     Route: 042
     Dates: start: 20240606, end: 20240606
  76. TORSEMIDE [Concomitant]
     Active Substance: TORSEMIDE
     Dosage: 60 MG, QD
     Route: 042
     Dates: start: 20240607, end: 20240607
  77. TORSEMIDE [Concomitant]
     Active Substance: TORSEMIDE
     Dosage: 20 MG, QD
     Route: 042
     Dates: start: 20240629, end: 20240629
  78. TORSEMIDE [Concomitant]
     Active Substance: TORSEMIDE
     Dosage: 20 MG, QD
     Route: 042
     Dates: start: 20240701, end: 20240701
  79. TORSEMIDE [Concomitant]
     Active Substance: TORSEMIDE
     Dosage: 20 MG, QD
     Route: 042
     Dates: start: 20240702, end: 20240702
  80. TORSEMIDE [Concomitant]
     Active Substance: TORSEMIDE
     Dosage: 20 MG, QD
     Route: 042
     Dates: start: 20240703, end: 20240703
  81. TORSEMIDE [Concomitant]
     Active Substance: TORSEMIDE
     Dosage: 20 MG, QD
     Route: 042
     Dates: start: 20240704, end: 20240704
  82. TORSEMIDE [Concomitant]
     Active Substance: TORSEMIDE
     Dosage: 20 MG, ONCE
     Route: 042
     Dates: start: 20240705, end: 20240705
  83. TORSEMIDE [Concomitant]
     Active Substance: TORSEMIDE
     Dosage: 20 MG, QD
     Route: 042
     Dates: start: 20240720, end: 20240720
  84. UBIDECARENONE [Concomitant]
     Active Substance: UBIDECARENONE
     Dosage: 20 MG, TID
     Route: 048
     Dates: start: 20240715
  85. WARFARIN [Concomitant]
     Active Substance: WARFARIN
     Dosage: 3 MG, HS
     Route: 048
     Dates: start: 20240615
  86. WARFARIN [Concomitant]
     Active Substance: WARFARIN
     Dosage: 2.75 MG, QD
     Route: 048
     Dates: start: 20240624, end: 20240624
  87. WARFARIN [Concomitant]
     Active Substance: WARFARIN
     Dosage: 2.25 MG, HS
     Route: 048
     Dates: start: 20240628
  88. WARFARIN [Concomitant]
     Active Substance: WARFARIN
     Dosage: 0.75 MG, HS
     Route: 048
     Dates: start: 20240822

REACTIONS (1)
  - Acute kidney injury [Not Recovered/Not Resolved]

NARRATIVE: CASE EVENT DATE: 20241009
